FAERS Safety Report 6347186-X (Version None)
Quarter: 2009Q3

REPORT INFORMATION
  Report Type: 
  Country: None (occurrence: None)
  Receive Date: 20090910
  Receipt Date: 20090828
  Transmission Date: 20100115
  Serious: Yes (Other)
  Sender: FDA-Public Use
  Company Number: PHEH2009US08211

PATIENT
  Sex: Female

DRUGS (2)
  1. GLEEVEC [Suspect]
     Indication: GASTRIC CANCER
     Dosage: 400 MG, QD
     Route: 048
     Dates: start: 20090228
  2. NASONEX [Concomitant]
     Dosage: UNK

REACTIONS (4)
  - BACK INJURY [None]
  - HYPOTHYROIDISM [None]
  - INCONTINENCE [None]
  - POLLAKIURIA [None]
